FAERS Safety Report 20597530 (Version 1)
Quarter: 2022Q1

REPORT INFORMATION
  Report Type: Spontaneous
  Country: US (occurrence: US)
  Receive Date: 20220315
  Receipt Date: 20220315
  Transmission Date: 20220424
  Serious: No
  Sender: FDA-Public Use
  Company Number: US-PFIZER INC-2021602665

PATIENT
  Age: 50 Year
  Sex: Female
  Weight: 81.65 kg

DRUGS (2)
  1. ZOLOFT [Suspect]
     Active Substance: SERTRALINE HYDROCHLORIDE
     Indication: Depression
     Dosage: UNK
     Route: 048
     Dates: start: 2006
  2. IBUPROFEN [Concomitant]
     Active Substance: IBUPROFEN
     Indication: Depression
     Dosage: 450 MG, DAILY
     Dates: start: 2006

REACTIONS (1)
  - Drug ineffective [Unknown]
